FAERS Safety Report 10087084 (Version 1)
Quarter: 2014Q2

REPORT INFORMATION
  Report Type: Spontaneous
  Country: US (occurrence: US)
  Receive Date: 20140418
  Receipt Date: 20140418
  Transmission Date: 20141212
  Serious: Yes (Hospitalization, Other)
  Sender: FDA-Public Use
  Company Number: US-ELI_LILLY_AND_COMPANY-US201404002900

PATIENT
  Sex: Male

DRUGS (11)
  1. HUMULIN NPH [Suspect]
     Indication: TYPE 2 DIABETES MELLITUS
     Dosage: UNK
  2. NOVOLIN [Concomitant]
  3. PHENYTOIN SOD. [Concomitant]
     Dosage: 100 MG, BID
  4. MINOXIDIL [Concomitant]
     Dosage: 2.5 MG, TID
  5. DONEPEZIL HCL [Concomitant]
     Dosage: 5 MG, QD
  6. FUROSEMIDE [Concomitant]
     Dosage: 40 MG, QD
  7. DILANTIN                           /00017401/ [Concomitant]
     Dosage: 30 MG, BID
  8. ASPIRIN [Concomitant]
     Dosage: 81 MG, QD
  9. METOLAZONE [Concomitant]
     Dosage: 10 MG, QD
  10. NAMENDA [Concomitant]
     Dosage: 10 MG, BID
  11. DOXAZOSIN MESYLATE [Concomitant]
     Dosage: 4 MG, BID

REACTIONS (6)
  - Cerebrovascular accident [Unknown]
  - Cerebrovascular accident [Unknown]
  - Blindness [Unknown]
  - Panic reaction [Unknown]
  - Feeling abnormal [Unknown]
  - Incorrect route of drug administration [Unknown]
